FAERS Safety Report 17510814 (Version 2)
Quarter: 2022Q2

REPORT INFORMATION
  Report Type: Report from Study
  Country: US (occurrence: US)
  Receive Date: 20200306
  Receipt Date: 20220513
  Transmission Date: 20220721
  Serious: No
  Sender: FDA-Public Use
  Company Number: US-HARMONY BIOSCIENCES-2019HMY00056

PATIENT
  Age: 49 Year
  Sex: Male
  Weight: 61.224 kg

DRUGS (10)
  1. WAKIX [Suspect]
     Active Substance: PITOLISANT HYDROCHLORIDE
     Indication: Narcolepsy
     Dosage: 4.45 MG, 1X/DAY
     Route: 048
     Dates: start: 20191121, end: 20191121
  2. MAGNESIUM [Concomitant]
     Active Substance: MAGNESIUM
     Dosage: 400 MG, 1X/DAY WITH BREAKFAST
  3. OMEPRAZOLE [Concomitant]
     Active Substance: OMEPRAZOLE
     Dosage: 20 MG, 1X/DAY WITH BREAKFAST
  4. MEMANTINE [Concomitant]
     Active Substance: MEMANTINE
     Dosage: 10 MG, 2X/DAY WITH BREAKFAST AND AT NIGHT
  5. NADOLOL [Concomitant]
     Active Substance: NADOLOL
     Dosage: 20 MG, 1X/DAY WITH BREAKFAST
  6. SYNTHROID [Concomitant]
     Active Substance: LEVOTHYROXINE SODIUM
     Dosage: 137 ?G, 1X/DAY WITH BREAKFAST
  7. QUETIAPINE [Concomitant]
     Active Substance: QUETIAPINE
     Dosage: 300 MG, 1X/DAY AT NIGHT
  8. VITAMINS [Concomitant]
     Active Substance: VITAMINS
  9. ALENDRONATE [Concomitant]
     Active Substance: ALENDRONATE SODIUM
     Dosage: 70 MG, 1X/WEEK
  10. MAXALT [Concomitant]
     Active Substance: RIZATRIPTAN BENZOATE

REACTIONS (2)
  - Headache [Recovered/Resolved]
  - Incorrect dose administered [Recovered/Resolved]

NARRATIVE: CASE EVENT DATE: 20191121
